FAERS Safety Report 8358494-5 (Version None)
Quarter: 2012Q2

REPORT INFORMATION
  Report Type: 
  Country: None (occurrence: None)
  Receive Date: 20120514
  Receipt Date: 20120510
  Transmission Date: 20120825
  Serious: Yes (Other)
  Sender: FDA-Public Use
  Company Number: US-PFIZER INC-2012114831

PATIENT
  Sex: Female
  Weight: 68.481 kg

DRUGS (2)
  1. CELEBREX [Suspect]
     Indication: ARTHRITIS
     Dosage: 200 MG, DAILY
     Route: 048
     Dates: end: 20120101
  2. ATENOLOL [Concomitant]
     Indication: GENERAL PHYSICAL HEALTH DETERIORATION
     Dosage: UNK

REACTIONS (3)
  - SYSTEMIC LUPUS ERYTHEMATOSUS [None]
  - WEIGHT INCREASED [None]
  - FIBROMYALGIA [None]
